FAERS Safety Report 23172713 (Version 1)
Quarter: 2023Q4

REPORT INFORMATION
  Report Type: Spontaneous
  Country: US (occurrence: US)
  Receive Date: 20231110
  Receipt Date: 20231110
  Transmission Date: 20240110
  Serious: Yes (Other)
  Sender: FDA-Public Use
  Company Number: US-MYLANLABS-2014131970

PATIENT
  Age: 46 Year
  Sex: Female

DRUGS (48)
  1. VENLAFAXINE HCL [Suspect]
     Active Substance: VENLAFAXINE HYDROCHLORIDE
     Indication: Major depression
     Dosage: 262.5 MILLIGRAM
     Route: 065
  2. VENLAFAXINE HCL [Suspect]
     Active Substance: VENLAFAXINE HYDROCHLORIDE
     Indication: Depression
  3. VENLAFAXINE HCL [Suspect]
     Active Substance: VENLAFAXINE HYDROCHLORIDE
     Indication: Post-traumatic stress disorder
  4. VENLAFAXINE HCL [Suspect]
     Active Substance: VENLAFAXINE HYDROCHLORIDE
     Indication: Panic disorder
  5. GABAPENTIN [Suspect]
     Active Substance: GABAPENTIN
     Indication: Major depression
     Dosage: 600 MILLIGRAM, QD (AT BEDTIME )
     Route: 065
  6. GABAPENTIN [Suspect]
     Active Substance: GABAPENTIN
     Indication: Depression
  7. GABAPENTIN [Suspect]
     Active Substance: GABAPENTIN
     Indication: Post-traumatic stress disorder
  8. GABAPENTIN [Suspect]
     Active Substance: GABAPENTIN
     Indication: Panic disorder
  9. LITHIUM CARBONATE [Suspect]
     Active Substance: LITHIUM CARBONATE
     Indication: Major depression
     Dosage: 900 MILLIGRAM
     Route: 065
  10. LITHIUM CARBONATE [Suspect]
     Active Substance: LITHIUM CARBONATE
     Indication: Depression
  11. LITHIUM CARBONATE [Suspect]
     Active Substance: LITHIUM CARBONATE
     Indication: Post-traumatic stress disorder
  12. LITHIUM CARBONATE [Suspect]
     Active Substance: LITHIUM CARBONATE
     Indication: Panic disorder
  13. PAROXETINE [Suspect]
     Active Substance: PAROXETINE
     Indication: Major depression
     Dosage: UNK
     Route: 065
  14. PAROXETINE [Suspect]
     Active Substance: PAROXETINE
     Indication: Depression
  15. PAROXETINE [Suspect]
     Active Substance: PAROXETINE
     Indication: Post-traumatic stress disorder
  16. PAROXETINE [Suspect]
     Active Substance: PAROXETINE
     Indication: Panic disorder
  17. RISPERIDONE [Suspect]
     Active Substance: RISPERIDONE
     Indication: Major depression
     Dosage: 2 MILLIGRAM
     Route: 065
  18. RISPERIDONE [Suspect]
     Active Substance: RISPERIDONE
     Indication: Depression
  19. RISPERIDONE [Suspect]
     Active Substance: RISPERIDONE
     Indication: Post-traumatic stress disorder
  20. RISPERIDONE [Suspect]
     Active Substance: RISPERIDONE
     Indication: Panic disorder
  21. PROPRANOLOL HYDROCHLORIDE [Suspect]
     Active Substance: PROPRANOLOL HYDROCHLORIDE
     Indication: Major depression
     Dosage: 10 MILLIGRAM, TID (10 MG, 3X/DAY REGIMEN DOSE UNIT: MILLIGRAM)
     Route: 065
  22. PROPRANOLOL HYDROCHLORIDE [Suspect]
     Active Substance: PROPRANOLOL HYDROCHLORIDE
     Indication: Depression
  23. PROPRANOLOL HYDROCHLORIDE [Suspect]
     Active Substance: PROPRANOLOL HYDROCHLORIDE
     Indication: Post-traumatic stress disorder
  24. PROPRANOLOL HYDROCHLORIDE [Suspect]
     Active Substance: PROPRANOLOL HYDROCHLORIDE
     Indication: Panic disorder
  25. DULOXETINE [Suspect]
     Active Substance: DULOXETINE
     Indication: Major depression
     Dosage: 60 MILLIGRAM, QD (60 MG, DAILY)
     Route: 065
  26. DULOXETINE [Suspect]
     Active Substance: DULOXETINE
     Indication: Depression
  27. DULOXETINE [Suspect]
     Active Substance: DULOXETINE
     Indication: Post-traumatic stress disorder
  28. DULOXETINE [Suspect]
     Active Substance: DULOXETINE
     Indication: Panic disorder
  29. TRAZODONE [Suspect]
     Active Substance: TRAZODONE HYDROCHLORIDE
     Indication: Major depression
     Dosage: UNK
     Route: 065
  30. TRAZODONE [Suspect]
     Active Substance: TRAZODONE HYDROCHLORIDE
     Indication: Depression
  31. TRAZODONE [Suspect]
     Active Substance: TRAZODONE HYDROCHLORIDE
     Indication: Post-traumatic stress disorder
  32. TRAZODONE [Suspect]
     Active Substance: TRAZODONE HYDROCHLORIDE
     Indication: Panic disorder
  33. ARIPIPRAZOLE [Suspect]
     Active Substance: ARIPIPRAZOLE
     Indication: Major depression
     Dosage: 15 MILLIGRAM
     Route: 065
  34. ARIPIPRAZOLE [Suspect]
     Active Substance: ARIPIPRAZOLE
     Indication: Depression
  35. ARIPIPRAZOLE [Suspect]
     Active Substance: ARIPIPRAZOLE
     Indication: Post-traumatic stress disorder
  36. ARIPIPRAZOLE [Suspect]
     Active Substance: ARIPIPRAZOLE
     Indication: Panic disorder
  37. CHLORPROMAZINE [Suspect]
     Active Substance: CHLORPROMAZINE
     Indication: Major depression
     Dosage: 100 MILLIGRAM, QD (100 MG, 1X/DAY ( AT BEDTIME) REGIMEN DOSE UNIT: MILLIGRAM)
     Route: 065
  38. CHLORPROMAZINE [Suspect]
     Active Substance: CHLORPROMAZINE
     Indication: Depression
  39. CHLORPROMAZINE [Suspect]
     Active Substance: CHLORPROMAZINE
     Indication: Post-traumatic stress disorder
  40. CHLORPROMAZINE [Suspect]
     Active Substance: CHLORPROMAZINE
     Indication: Panic disorder
  41. DEXTROAMPHETAMINE [Suspect]
     Active Substance: DEXTROAMPHETAMINE
     Indication: Major depression
     Dosage: 5 MILLIGRAM (EXTENDED RELEASE)
     Route: 065
  42. DEXTROAMPHETAMINE [Suspect]
     Active Substance: DEXTROAMPHETAMINE
     Indication: Depression
  43. DEXTROAMPHETAMINE [Suspect]
     Active Substance: DEXTROAMPHETAMINE
     Indication: Post-traumatic stress disorder
  44. DEXTROAMPHETAMINE [Suspect]
     Active Substance: DEXTROAMPHETAMINE
     Indication: Panic disorder
  45. PRAZOSIN [Suspect]
     Active Substance: PRAZOSIN
     Indication: Major depression
     Dosage: 3 MILLIGRAM
     Route: 065
  46. PRAZOSIN [Suspect]
     Active Substance: PRAZOSIN
     Indication: Depression
  47. PRAZOSIN [Suspect]
     Active Substance: PRAZOSIN
     Indication: Post-traumatic stress disorder
  48. PRAZOSIN [Suspect]
     Active Substance: PRAZOSIN
     Indication: Panic disorder

REACTIONS (4)
  - Treatment failure [Unknown]
  - Drug ineffective [Unknown]
  - Drug intolerance [Unknown]
  - Drug ineffective for unapproved indication [Unknown]
